FAERS Safety Report 26113980 (Version 2)
Quarter: 2025Q4

REPORT INFORMATION
  Report Type: Spontaneous
  Country: GB (occurrence: GB)
  Receive Date: 20251202
  Receipt Date: 20251222
  Transmission Date: 20260117
  Serious: Yes (Hospitalization, Other)
  Sender: MYLAN
  Company Number: GB-MYLANLABS-2025M1102327

PATIENT
  Sex: Male

DRUGS (2)
  1. CLOZARIL [Suspect]
     Active Substance: CLOZAPINE
     Indication: Schizophrenia
     Dosage: UNK (CONFIRMED LAST DOSE TO BE NEARLY A MONTH AGO ON 18-NOV-2025)
     Route: 061
  2. OLANZAPINE [Concomitant]
     Active Substance: OLANZAPINE
     Dosage: UNK

REACTIONS (2)
  - Neoplasm malignant [Unknown]
  - Malignant pleural effusion [Unknown]

NARRATIVE: CASE EVENT DATE: 20240101
